FAERS Safety Report 7961192-0 (Version None)
Quarter: 2011Q4

REPORT INFORMATION
  Report Type: 
  Country: None (occurrence: None)
  Receive Date: 20111207
  Receipt Date: 20111125
  Transmission Date: 20120403
  Serious: Yes (Hospitalization, Other)
  Sender: FDA-Public Use
  Company Number: FR-UCBSA-041775

PATIENT
  Age: 68 Year
  Sex: Female

DRUGS (17)
  1. CIMZIA [Suspect]
     Indication: RHEUMATOID ARTHRITIS
     Dosage: 2 X 200MG
     Route: 058
     Dates: start: 20110712, end: 20110101
  2. POTASSIUM CHLORIDE [Concomitant]
  3. ACETAMINOPHEN [Concomitant]
  4. LAMALINE [Concomitant]
  5. LERCANIDIPINE [Concomitant]
  6. NOVOLOG MIX 70/30 [Concomitant]
  7. NOVORAPID [Concomitant]
  8. NEXIUM [Concomitant]
  9. MORPHINE SULFATE [Concomitant]
  10. LASIX [Concomitant]
  11. CIMZIA [Suspect]
     Route: 058
     Dates: start: 20110101, end: 20110101
  12. FLECAINIDE ACETATE [Concomitant]
  13. PREDNISONE TAB [Concomitant]
  14. OROCAL VITAMIN D3 [Concomitant]
  15. ACTONEL [Concomitant]
  16. RAMIPRIL [Concomitant]
  17. ATORVASTATIN CALCIUM [Concomitant]
     Dosage: 10 MG

REACTIONS (4)
  - BLISTER [None]
  - PRURITUS [None]
  - ARTERIOSCLEROSIS CORONARY ARTERY [None]
  - TRANSIENT ISCHAEMIC ATTACK [None]
